FAERS Safety Report 14876970 (Version 1)
Quarter: 2018Q2

REPORT INFORMATION
  Report Type: Spontaneous
  Country: JP (occurrence: JP)
  Receive Date: 20180510
  Receipt Date: 20180510
  Transmission Date: 20180711
  Serious: Yes (Hospitalization)
  Sender: FDA-Public Use
  Company Number: JP-EISAI MEDICAL RESEARCH-EC-2018-038615

PATIENT
  Age: 84 Year
  Sex: Male

DRUGS (2)
  1. LENVIMA [Suspect]
     Active Substance: LENVATINIB
     Indication: HEPATOCELLULAR CARCINOMA
     Route: 048
     Dates: start: 20180411, end: 20180418
  2. LENVIMA [Suspect]
     Active Substance: LENVATINIB
     Route: 048
     Dates: start: 20180419, end: 20180428

REACTIONS (4)
  - Decreased appetite [Unknown]
  - Ascites [Unknown]
  - Pneumatosis intestinalis [Unknown]
  - Renal impairment [Unknown]

NARRATIVE: CASE EVENT DATE: 20180418
